FAERS Safety Report 6920082-2 (Version None)
Quarter: 2010Q3

REPORT INFORMATION
  Report Type: 
  Country: None (occurrence: None)
  Receive Date: 20100811
  Receipt Date: 20100729
  Transmission Date: 20110219
  Serious: Yes (Hospitalization, Other)
  Sender: FDA-Public Use
  Company Number: US-ELI_LILLY_AND_COMPANY-US201007007796

PATIENT
  Sex: Female

DRUGS (3)
  1. FORTEO [Suspect]
     Indication: OSTEOPOROSIS
     Dosage: 20 UG, DAILY (1/D)
     Dates: start: 20100101, end: 20100727
  2. REMERON [Concomitant]
  3. PERCOCET [Concomitant]

REACTIONS (4)
  - ABDOMINAL DISCOMFORT [None]
  - FALL [None]
  - MUSCLE STRAIN [None]
  - NAUSEA [None]
